FAERS Safety Report 5528337-3 (Version None)
Quarter: 2007Q4

REPORT INFORMATION
  Report Type: 
  Country: None (occurrence: None)
  Receive Date: 20071128
  Receipt Date: 20071119
  Transmission Date: 20080405
  Serious: Yes (Life-Threatening)
  Sender: FDA-Public Use
  Company Number: GB-PFIZER INC-2007098105

PATIENT
  Age: 68 Year
  Sex: Female
  Weight: 65 kg

DRUGS (10)
  1. CHAMPIX [Suspect]
     Indication: SMOKING CESSATION THERAPY
     Route: 048
  2. ALENDRONIC ACID [Concomitant]
     Route: 048
  3. ANASTROZOLE [Concomitant]
     Route: 048
  4. CALCICHEW [Concomitant]
     Dosage: TEXT:1 DOSE
     Route: 048
  5. CO-CODAMOL [Concomitant]
  6. NAPROXEN [Concomitant]
     Route: 048
  7. SPIRIVA [Concomitant]
     Dosage: TEXT:1 DOSE-FREQ:DAILY
     Route: 055
  8. SYMBICORT [Concomitant]
     Dosage: TEXT:1 DOSE
     Route: 055
  9. TERBUTALINE SULFATE [Concomitant]
     Dosage: TEXT:1 DOSE
     Route: 055
  10. VENLAFAXINE HCL [Concomitant]
     Dosage: TEXT:2 DOSES-FREQ:DAILY

REACTIONS (2)
  - IMPAIRED DRIVING ABILITY [None]
  - SOMNOLENCE [None]
